FAERS Safety Report 18019741 (Version 4)
Quarter: 2021Q2

REPORT INFORMATION
  Report Type: Report from Study
  Country: US (occurrence: US)
  Receive Date: 20200714
  Receipt Date: 20210628
  Transmission Date: 20210717
  Serious: Yes (Other)
  Sender: FDA-Public Use
  Company Number: US-MYLANLABS-2020M1061603

PATIENT
  Sex: Female
  Weight: 102 kg

DRUGS (4)
  1. SULFAMETHOXAZOLE W/TRIMETHOPRIM [Concomitant]
     Active Substance: SULFAMETHOXAZOLE\TRIMETHOPRIM
     Dosage: 800 MILLIGRAM, BID
  2. GLATIRAMER ACETATE INJECTION [Suspect]
     Active Substance: GLATIRAMER ACETATE
     Indication: MULTIPLE SCLEROSIS
     Dosage: 40 MILLIGRAM, 3XW
     Route: 058
     Dates: start: 20200618
  3. VITAMIN D                          /00107901/ [Concomitant]
     Active Substance: ERGOCALCIFEROL
     Dosage: UNK
  4. OXYBUTIN [Concomitant]
     Active Substance: OXYBUTYNIN
     Dosage: UNK

REACTIONS (10)
  - Throat irritation [Unknown]
  - Escherichia urinary tract infection [Unknown]
  - Drug ineffective [Unknown]
  - Paranoid personality disorder [Unknown]
  - Pollakiuria [Unknown]
  - Arthralgia [Unknown]
  - Irritability [Unknown]
  - Anxiety [Not Recovered/Not Resolved]
  - Anger [Unknown]
  - Confusional state [Unknown]
